FAERS Safety Report 15266815 (Version 1)
Quarter: 2018Q3

REPORT INFORMATION
  Report Type: Spontaneous
  Country: ZA (occurrence: ZA)
  Receive Date: 20180810
  Receipt Date: 20180810
  Transmission Date: 20181010
  Serious: Yes (Death)
  Sender: FDA-Public Use
  Company Number: ZA-ANIPHARMA-2018-ZA-000001

PATIENT
  Age: 78 Year
  Sex: Female

DRUGS (8)
  1. LOMANOR [Concomitant]
     Active Substance: AMLODIPINE BESYLATE
     Route: 065
  2. ATACAND [Suspect]
     Active Substance: CANDESARTAN CILEXETIL
     Dosage: 16MG UNK
     Route: 048
  3. ECOTRIN [Concomitant]
     Active Substance: ASPIRIN
     Route: 065
  4. RISNIA [Concomitant]
     Active Substance: RISPERIDONE
     Route: 065
  5. MIRABEGRON [Concomitant]
     Active Substance: MIRABEGRON
     Dosage: 50MG UNK
     Route: 065
  6. PURICOS [Concomitant]
     Active Substance: ALLOPURINOL
     Dosage: 300MG UNK
     Route: 065
  7. ELTROXIN [Concomitant]
     Active Substance: LEVOTHYROXINE
     Dosage: 100UG UNK
     Route: 065
  8. BILOCOR [Concomitant]
     Active Substance: BISOPROLOL FUMARATE
     Dosage: 5MG UNK
     Route: 065

REACTIONS (1)
  - Death [Fatal]
